FAERS Safety Report 8807562 (Version 1)
Quarter: 2012Q4

REPORT INFORMATION
  Report Type: 
  Country: US (occurrence: US)
  Receive Date: 20120925
  Receipt Date: 20120925
  Transmission Date: 20130627
  Serious: No
  Sender: FDA-Public Use
  Company Number: US-FOUGERA-2012FO001081

PATIENT
  Age: 79 Year
  Sex: Female

DRUGS (6)
  1. LIDOCAINE + PRILOCAINE [Suspect]
     Indication: LOCAL ANAESTHESIA
     Route: 061
     Dates: start: 20110322, end: 20120417
  2. JUVEDERM [Suspect]
     Indication: PRODUCT USED FOR UNKNOWN INDICATION
     Dates: start: 20110322
  3. JUVEDERM [Suspect]
     Indication: PRODUCT USED FOR UNKNOWN INDICATION
     Dates: start: 20110323
  4. JUVEDERM [Suspect]
     Indication: PRODUCT USED FOR UNKNOWN INDICATION
     Dates: start: 20120417
  5. JUVEDERM [Suspect]
  6. JUVEDERM [Concomitant]

REACTIONS (1)
  - Rash macular [Recovered/Resolved]
